FAERS Safety Report 9427685 (Version 1)
Quarter: 2013Q3

REPORT INFORMATION
  Report Type: Report from Study
  Country: US (occurrence: US)
  Receive Date: 20130730
  Receipt Date: 20130730
  Transmission Date: 20140515
  Serious: No
  Sender: FDA-Public Use
  Company Number: US-ABBOTT-12P-163-0988266-00

PATIENT
  Sex: Male

DRUGS (12)
  1. NIASPAN (COATED) [Suspect]
     Indication: BLOOD CHOLESTEROL INCREASED
     Dates: start: 201208
  2. ZETIA [Concomitant]
     Indication: PRODUCT USED FOR UNKNOWN INDICATION
  3. HYDROCHLOROTHIAZIDE [Concomitant]
     Indication: PRODUCT USED FOR UNKNOWN INDICATION
  4. ACTOSE [Concomitant]
     Indication: PRODUCT USED FOR UNKNOWN INDICATION
  5. BENZOPRIL [Concomitant]
     Indication: PRODUCT USED FOR UNKNOWN INDICATION
     Dosage: 10 TO 40 MG
  6. KCHLOR [Concomitant]
     Indication: PRODUCT USED FOR UNKNOWN INDICATION
  7. JANUMET [Concomitant]
     Indication: PRODUCT USED FOR UNKNOWN INDICATION
  8. TORVASTIN [Concomitant]
     Indication: PRODUCT USED FOR UNKNOWN INDICATION
  9. VIT B AND D [Concomitant]
     Indication: PRODUCT USED FOR UNKNOWN INDICATION
  10. DOXYCINE METHYCYLATE [Concomitant]
     Indication: PRODUCT USED FOR UNKNOWN INDICATION
  11. KLOR-CON-M [Concomitant]
     Indication: PRODUCT USED FOR UNKNOWN INDICATION
  12. GLIMIPARIDE [Concomitant]
     Indication: PRODUCT USED FOR UNKNOWN INDICATION

REACTIONS (1)
  - Feeling hot [Not Recovered/Not Resolved]
